FAERS Safety Report 5810888-5 (Version None)
Quarter: 2008Q3

REPORT INFORMATION
  Report Type: 
  Country: None (occurrence: None)
  Receive Date: 20080716
  Receipt Date: 20080703
  Transmission Date: 20090109
  Serious: Yes (Hospitalization, Other)
  Sender: FDA-Public Use
  Company Number: PHHY2008US12396

PATIENT
  Sex: Male

DRUGS (5)
  1. LIORESAL [Suspect]
     Indication: MUSCLE SPASTICITY
     Dosage: 115 MCG/DAY
     Route: 037
     Dates: start: 20080528
  2. LIORESAL [Suspect]
     Dosage: 50 MCG/DAY
     Route: 037
     Dates: start: 20080604
  3. LIORESAL [Suspect]
     Dosage: 70-105 MCG/DAY
     Route: 037
  4. LIORESAL [Suspect]
     Dosage: 130 MCG/DAY
     Route: 037
  5. BACLOFEN [Suspect]
     Route: 048

REACTIONS (16)
  - CLONUS [None]
  - DROOLING [None]
  - DRUG INEFFECTIVE [None]
  - DRUG WITHDRAWAL SYNDROME [None]
  - DYSKINESIA [None]
  - FLAT AFFECT [None]
  - HEADACHE [None]
  - HYPERTONIA [None]
  - HYPOTONIA [None]
  - INFECTION [None]
  - MUSCLE TIGHTNESS [None]
  - OVERDOSE [None]
  - PENILE PAIN [None]
  - POST PROCEDURAL COMPLICATION [None]
  - PYREXIA [None]
  - SEROMA [None]
